FAERS Safety Report 8578825-0 (Version None)
Quarter: 2012Q3

REPORT INFORMATION
  Report Type: 
  Country: None (occurrence: None)
  Receive Date: 20120801
  Receipt Date: 20120801
  Transmission Date: 20120928
  Serious: No
  Sender: FDA-Public Use
  Company Number: None

PATIENT
  Sex: Female
  Weight: 130.9 kg

DRUGS (2)
  1. ABT-888 (VELIPARIB) [Suspect]
     Dosage: 400 MG
     Dates: end: 20120630
  2. TEMOZOLOMIDE [Suspect]
     Dosage: 2300MG
     Dates: end: 20120630

REACTIONS (7)
  - TOXICITY TO VARIOUS AGENTS [None]
  - HEADACHE [None]
  - APHASIA [None]
  - NEOPLASM PROGRESSION [None]
  - PLATELET COUNT DECREASED [None]
  - HEMIPARESIS [None]
  - GLIOBLASTOMA MULTIFORME [None]
